FAERS Safety Report 6245320-3 (Version None)
Quarter: 2009Q2

REPORT INFORMATION
  Report Type: 
  Country: None (occurrence: None)
  Receive Date: 20090625
  Receipt Date: 20090619
  Transmission Date: 20091009
  Serious: Yes (Hospitalization)
  Sender: FDA-Public Use
  Company Number: US-GILEAD-2009-0022453

PATIENT
  Sex: Female

DRUGS (11)
  1. LETAIRIS [Suspect]
     Indication: PULMONARY ARTERIAL HYPERTENSION
     Route: 048
     Dates: start: 20080513
  2. ASPIRIN [Concomitant]
  3. LOVENOX [Concomitant]
  4. METOPROLOL SUCCINATE [Concomitant]
  5. SIMVASTATIN [Concomitant]
  6. DUONEB [Concomitant]
  7. GABAPENTIN [Concomitant]
  8. LEVOTHYROXINE SODIUM [Concomitant]
  9. PANTOPRAZOLE SODIUM [Concomitant]
  10. LANTUS [Concomitant]
  11. NOVOLOG [Concomitant]

REACTIONS (4)
  - PNEUMONIA [None]
  - RENAL FAILURE CHRONIC [None]
  - RESPIRATORY FAILURE [None]
  - SEPSIS SYNDROME [None]
